FAERS Safety Report 7631188-7 (Version None)
Quarter: 2011Q3

REPORT INFORMATION
  Report Type: 
  Country: None (occurrence: None)
  Receive Date: 20110725
  Receipt Date: 20110712
  Transmission Date: 20111222
  Serious: Yes (Other)
  Sender: FDA-Public Use
  Company Number: GB-JNJFOC-20110705053

PATIENT
  Age: 28 Year
  Sex: Male

DRUGS (7)
  1. CORTICOSTEROIDS [Suspect]
     Indication: PRODUCT USED FOR UNKNOWN INDICATION
  2. ZIDOVUDINE [Suspect]
     Indication: HIV INFECTION
  3. CEFOTAXIME [Concomitant]
     Indication: ENCEPHALITIS
  4. ACYCLOVIR [Concomitant]
     Indication: ENCEPHALITIS
  5. RITONAVIR [Suspect]
     Indication: HIV INFECTION
  6. LAMIVUDINE [Suspect]
     Indication: HIV INFECTION
  7. DARUNAVIR ETHANOLATE [Suspect]
     Indication: HIV INFECTION
     Route: 048

REACTIONS (1)
  - AMNESIA [None]
